FAERS Safety Report 6129118-2 (Version None)
Quarter: 2009Q1

REPORT INFORMATION
  Report Type: 
  Country: None (occurrence: None)
  Receive Date: 20090320
  Receipt Date: 20090309
  Transmission Date: 20090719
  Serious: Yes (Hospitalization)
  Sender: FDA-Public Use
  Company Number: GXKR2009JP03093

PATIENT
  Age: 70 Year
  Sex: Male

DRUGS (3)
  1. CARBOPLATIN [Suspect]
     Indication: LUNG NEOPLASM MALIGNANT
     Dosage: INFUSION
     Dates: start: 20080101, end: 20080101
  2. PACLITAXEL [Suspect]
     Indication: LUNG NEOPLASM MALIGNANT
     Dosage: INFUSION
     Dates: start: 20080101, end: 20080101
  3. ANTIBIOTICS (NO INGREDIENTS/SUBSTANCES) [Concomitant]

REACTIONS (4)
  - ACUTE RESPIRATORY DISTRESS SYNDROME [None]
  - BACTERIA SPUTUM IDENTIFIED [None]
  - INTERSTITIAL LUNG DISEASE [None]
  - PNEUMONIA BACTERIAL [None]
